FAERS Safety Report 11610532 (Version 1)
Quarter: 2015Q4

REPORT INFORMATION
  Report Type: Spontaneous
  Country: TR (occurrence: None)
  Receive Date: 20151006
  Receipt Date: 20151006
  Transmission Date: 20160304
  Serious: Yes (Other)
  Sender: FDA-Public Use
  Company Number: HRA-CDB20150217

PATIENT
  Age: 27 Year
  Sex: Female
  Weight: 55 kg

DRUGS (1)
  1. ELLA [Suspect]
     Active Substance: ULIPRISTAL ACETATE
     Indication: CONTRACEPTION
     Dates: start: 20150504

REACTIONS (12)
  - Burning sensation [None]
  - Flushing [None]
  - Headache [None]
  - Dizziness [None]
  - Breast swelling [None]
  - Flatulence [None]
  - Erythema [None]
  - Haemorrhage [None]
  - Affect lability [None]
  - No therapeutic response [None]
  - Pain in extremity [None]
  - Breast pain [None]

NARRATIVE: CASE EVENT DATE: 20150504
